FAERS Safety Report 5905207-X (Version None)
Quarter: 2008Q3

REPORT INFORMATION
  Report Type: 
  Country: None (occurrence: None)
  Receive Date: 20080909
  Receipt Date: 20071011
  Transmission Date: 20090109
  Serious: Yes (Hospitalization)
  Sender: FDA-Public Use
  Company Number: 163-20785-07100694

PATIENT
  Age: 62 Year
  Sex: Male
  Weight: 90.3 kg

DRUGS (17)
  1. THALOMID [Suspect]
     Indication: MULTIPLE MYELOMA
     Dosage: 200-100MG, DAILY, ORAL
     Route: 048
     Dates: start: 20040914, end: 20060309
  2. VELCADE [Suspect]
     Indication: MULTIPLE MYELOMA
     Dosage: 1 MG/ML ; 1 MG/ML
     Dates: start: 20040911, end: 20060306
  3. VELCADE [Suspect]
     Indication: MULTIPLE MYELOMA
     Dosage: 1 MG/ML ; 1 MG/ML
     Dates: start: 20060327, end: 20061229
  4. DEXAMETHASONE [Suspect]
     Indication: MULTIPLE MYELOMA
     Dosage: 40-20MG, DAY 1-4 AND DAYS 8-11 EVERY 28 DAYS, ORAL
     Route: 048
     Dates: start: 20040914, end: 20060307
  5. ACYCLOVIR (ACICLOVIR) (TABLETS) [Concomitant]
  6. FLOMAX (TAMULSOSIN HYDROCHLORIDE) (CAPSULES) [Concomitant]
  7. LOTREL (LOTREL) (CAPSULES) [Concomitant]
  8. TYLENOL (PARACETAMOL) (TABLETS) [Concomitant]
  9. ALLEGRA [Concomitant]
  10. DIFLUCAN [Concomitant]
  11. LEVAQUIN [Concomitant]
  12. RANITIDINE HCL (RANITIDINE HYDROCHLORIDE) (CAPSULES) [Concomitant]
  13. POTASSIUM CHLORIDE [Concomitant]
  14. PROCRIT (ERYTHROPOIETIN) (SOLUTION) [Concomitant]
  15. LOVENOX [Concomitant]
  16. OXYCODONE HCL [Concomitant]
  17. FLAGYL [Concomitant]

REACTIONS (1)
  - UPPER RESPIRATORY TRACT INFECTION [None]
